FAERS Safety Report 6239882-X (Version None)
Quarter: 2009Q2

REPORT INFORMATION
  Report Type: 
  Country: None (occurrence: None)
  Receive Date: 20090623
  Receipt Date: 20090616
  Transmission Date: 20091009
  Serious: Yes (Hospitalization)
  Sender: FDA-Public Use
  Company Number: FR-ASTRAZENECA-2009CG01257

PATIENT
  Age: 348 Month
  Sex: Male

DRUGS (3)
  1. ENTOCORT EC [Suspect]
     Indication: CROHN'S DISEASE
     Route: 048
     Dates: start: 20080101, end: 20080101
  2. FLAGYL [Suspect]
     Route: 048
     Dates: start: 20080101, end: 20080101
  3. CIFLOX [Suspect]
     Route: 048
     Dates: start: 20080101, end: 20080101

REACTIONS (1)
  - ANGIOEDEMA [None]
